FAERS Safety Report 16845423 (Version 1)
Quarter: 2019Q3

REPORT INFORMATION
  Report Type: Spontaneous
  Country: US (occurrence: US)
  Receive Date: 20190802
  Receipt Date: 20190802
  Transmission Date: 20191005
  Serious: Yes (Hospitalization)
  Sender: FDA-Public Use
  Company Number: None

PATIENT
  Age: 73 Year
  Sex: Female

DRUGS (11)
  1. OCALIVA [Suspect]
     Active Substance: OBETICHOLIC ACID
     Indication: PRIMARY BILIARY CHOLANGITIS
     Route: 048
     Dates: start: 20190119
  2. PROZAC [Concomitant]
     Active Substance: FLUOXETINE HYDROCHLORIDE
  3. CILOSTAZOL. [Concomitant]
     Active Substance: CILOSTAZOL
  4. SIDENAFIL [Concomitant]
     Active Substance: SILDENAFIL
  5. URSODIOL. [Suspect]
     Active Substance: URSODIOL
  6. CALCIUM [Concomitant]
     Active Substance: CALCIUM
  7. PANTOPROZOLE [Concomitant]
  8. VITAMIN C [Concomitant]
     Active Substance: ASCORBIC ACID
  9. MAGNESIUM [Concomitant]
     Active Substance: MAGNESIUM
  10. SIMVASTATIN. [Concomitant]
     Active Substance: SIMVASTATIN
  11. IRON [Concomitant]
     Active Substance: IRON

REACTIONS (1)
  - Anaemia [None]

NARRATIVE: CASE EVENT DATE: 20190729
